FAERS Safety Report 9047133 (Version 1)
Quarter: 2013Q1

REPORT INFORMATION
  Report Type: Report from Study
  Country: US (occurrence: US)
  Receive Date: 20130130
  Receipt Date: 20130130
  Transmission Date: 20140127
  Serious: No
  Sender: FDA-Public Use
  Company Number: US-ABBOTT-12P-163-0976691-00

PATIENT
  Age: 57 Year
  Sex: Male

DRUGS (22)
  1. HUMIRA [Suspect]
     Indication: PSORIATIC ARTHROPATHY
     Dates: start: 201203
  2. CELEBREX [Concomitant]
     Indication: ARTHRITIS
     Route: 048
  3. SULFASALAZINE [Concomitant]
     Indication: ARTHRITIS
     Route: 048
  4. ZOLOFT [Concomitant]
     Indication: DEPRESSION
     Route: 048
  5. FOLIC ACID [Concomitant]
     Indication: ARTHRITIS
     Route: 048
  6. WELLBUTRIN XR [Concomitant]
     Indication: DEPRESSION
     Route: 048
  7. AMLODIPINE [Concomitant]
     Indication: CARDIOVASCULAR EVENT PROPHYLAXIS
     Route: 048
  8. SERTRALINE HCL [Concomitant]
     Indication: ILL-DEFINED DISORDER
     Route: 048
  9. METHOTREXATE [Concomitant]
     Indication: ARTHRITIS
     Route: 048
  10. AMBIEN [Concomitant]
     Indication: INSOMNIA
     Dosage: AT BEDTIME
     Route: 048
  11. SUCRALFATE [Concomitant]
     Indication: PROPHYLAXIS AGAINST GASTROINTESTINAL ULCER
     Route: 048
  12. ASA [Concomitant]
     Indication: CARDIOVASCULAR EVENT PROPHYLAXIS
     Route: 048
  13. IRON [Concomitant]
     Indication: BLOOD IRON DECREASED
     Route: 048
  14. VITAMIN B3 [Concomitant]
     Indication: ROUTINE HEALTH MAINTENANCE
     Route: 048
  15. OXYCODONE [Concomitant]
     Indication: PAIN
     Dosage: 10/325MG 2 TABS EVERY 4-6 HOURS
     Route: 048
  16. CLOBETASOL [Concomitant]
     Indication: PSORIASIS
     Route: 061
  17. DESONIDE [Concomitant]
     Indication: PSORIASIS
     Dosage: APPLY TO FACE
  18. VERDESO [Concomitant]
     Indication: PRODUCT USED FOR UNKNOWN INDICATION
     Dosage: FOAM TO HAIR
  19. EPIPEN [Concomitant]
     Indication: ALLERGY TO ARTHROPOD STING
  20. CALCIUM PLUS D AND VITAMIN K CARAMEL CHEW [Concomitant]
     Indication: PRODUCT USED FOR UNKNOWN INDICATION
  21. CETIRIZINE [Concomitant]
     Indication: SEASONAL ALLERGY
     Route: 048
  22. CYANOCOBALAMIN [Concomitant]
     Indication: VITAMIN B12 ABNORMAL
     Dosage: 1000MG/1ML

REACTIONS (2)
  - Dyspnoea [Not Recovered/Not Resolved]
  - Bacterial disease carrier [Unknown]
